FAERS Safety Report 11403037 (Version 1)
Quarter: 2015Q3

REPORT INFORMATION
  Report Type: Spontaneous
  Country: US (occurrence: US)
  Receive Date: 20150821
  Receipt Date: 20150821
  Transmission Date: 20151125
  Serious: No
  Sender: FDA-Public Use
  Company Number: US-ROCHE-1361249

PATIENT
  Sex: Male

DRUGS (2)
  1. PROTONIX (UNITED STATES) [Concomitant]
  2. PEGASYS [Suspect]
     Active Substance: PEGINTERFERON ALFA-2A
     Indication: CHRONIC HEPATITIS C
     Route: 058
     Dates: start: 20140124

REACTIONS (1)
  - Abdominal discomfort [Unknown]
